FAERS Safety Report 4280786-X (Version None)
Quarter: 2004Q1

REPORT INFORMATION
  Report Type: 
  Country: None (occurrence: None)
  Receive Date: 20040129
  Receipt Date: 20031119
  Transmission Date: 20041129
  Serious: Yes (Hospitalization)
  Sender: FDA-Public Use
  Company Number: 200321894GDDC

PATIENT
  Age: 45 Year
  Sex: Female

DRUGS (6)
  1. LEFLUNOMIDE [Suspect]
     Indication: RHEUMATOID ARTHRITIS
     Route: 048
     Dates: start: 20000201, end: 20030505
  2. ENBREL [Suspect]
     Indication: RHEUMATOID ARTHRITIS
     Route: 058
     Dates: start: 20030312, end: 20031001
  3. PREDNISONE [Concomitant]
  4. LISINOPRIL [Concomitant]
     Route: 048
  5. PROZAC [Concomitant]
     Route: 048
  6. DIDROCAL [Concomitant]
     Dosage: DOSE: UNK

REACTIONS (6)
  - DIARRHOEA [None]
  - DRUG INEFFECTIVE [None]
  - HEPATITIS [None]
  - NAUSEA [None]
  - SYNOVITIS [None]
  - VOMITING [None]
